FAERS Safety Report 20305022 (Version 3)
Quarter: 2022Q4

REPORT INFORMATION
  Report Type: Report from Study
  Country: DE (occurrence: DE)
  Receive Date: 20220106
  Receipt Date: 20221216
  Transmission Date: 20230112
  Serious: Yes (Hospitalization, Other)
  Sender: FDA-Public Use
  Company Number: DE-002147023-NVSC2019DE073678

PATIENT
  Sex: Female
  Weight: 61 kg

DRUGS (15)
  1. FULVESTRANT [Suspect]
     Active Substance: FULVESTRANT
     Indication: Breast cancer
     Dosage: 250 MG EVERY 2 WEEKS, START DATE: 04-JAN-2021
     Route: 030
  2. FULVESTRANT [Suspect]
     Active Substance: FULVESTRANT
     Dosage: 500 MG  EVERY 2 WEEKS
     Route: 030
     Dates: start: 20210201, end: 20210228
  3. FULVESTRANT [Suspect]
     Active Substance: FULVESTRANT
     Dosage: 500 MG EVERY 4 WEEKS
     Route: 030
     Dates: start: 20210301
  4. FULVESTRANT [Suspect]
     Active Substance: FULVESTRANT
     Dosage: 500 MG EVERY 4 WEEKS
     Route: 030
     Dates: start: 20220718
  5. FULVESTRANT [Suspect]
     Active Substance: FULVESTRANT
     Dosage: 250 MG EVERY 2 WEEKS
     Route: 030
     Dates: start: 20210104, end: 20210131
  6. LETROZOLE [Suspect]
     Active Substance: LETROZOLE
     Indication: Breast cancer metastatic
     Dosage: 2.5 MILLIGRAM, QD (2.5 MG, QD)
     Route: 048
     Dates: start: 20180708
  7. KISQALI [Suspect]
     Active Substance: RIBOCICLIB
     Indication: Breast cancer metastatic
     Dosage: 600 MILLIGRAM (600 MG, SCHEDULE 21 DAYS INTAKE THAN 7 DAYS PAUSE)
     Route: 048
     Dates: start: 20180801
  8. KISQALI [Suspect]
     Active Substance: RIBOCICLIB
     Dosage: 400 MILLIGRAM ( 400 MG, SCHEDULE 21 DAYS INTAKE THAN 7 DAYS PAUSE)
     Route: 048
     Dates: start: 20180818
  9. KISQALI [Suspect]
     Active Substance: RIBOCICLIB
     Dosage: 400 MILLIGRAM, QD (400 MG, QD, SCHEME 21 DAYS INTAKE THAN 7 DAYS PAUSE)
     Route: 048
     Dates: start: 20191016
  10. KISQALI [Suspect]
     Active Substance: RIBOCICLIB
     Dosage: 400 MILLIGRAM, QD (400 MG, QD, SCHEME 21 DAYS INTAKE THAN 7 DAYS PAUSE)
     Route: 048
     Dates: start: 20191025
  11. KISQALI [Suspect]
     Active Substance: RIBOCICLIB
     Dosage: 400 MILLIGRAM(400 MG SCHEME 21 DAYS INTAKE, 7 DAYS PAUSE)
     Route: 048
     Dates: start: 20200908
  12. KISQALI [Suspect]
     Active Substance: RIBOCICLIB
     Dosage: 400 MILLIGRAM, QD (400 MG SCHEME 21 DAYS INTAKE, 7 DAYS PAUSE)
     Route: 048
     Dates: start: 20191219
  13. KISQALI [Suspect]
     Active Substance: RIBOCICLIB
     Dosage: 200 MILLIGRAM (200 MG SCHEME 21 DAYS INTAKE, 7 DAYS PAUSE)
     Route: 048
     Dates: start: 20200816
  14. KISQALI [Suspect]
     Active Substance: RIBOCICLIB
     Dosage: 400 MILLIGRAM ( 400 MG, SCHEDULE 21 DAYS INTAKE THAN 7 DAYS PAUSE)
     Route: 048
     Dates: start: 20210104
  15. KISQALI [Suspect]
     Active Substance: RIBOCICLIB
     Dosage: 400 MG SCHEME 21 DAYS INTAKE, 7 DAYS PAUSE
     Route: 048
     Dates: start: 20220621

REACTIONS (11)
  - Stenosis [Recovering/Resolving]
  - Dementia [Not Recovered/Not Resolved]
  - Duodenal ulcer [Recovered/Resolved]
  - Helicobacter infection [Recovered/Resolved]
  - Haematoma [Recovered/Resolved]
  - Memory impairment [Unknown]
  - Cough [Recovered/Resolved]
  - Abdominal pain upper [Not Recovered/Not Resolved]
  - Vomiting [Recovered/Resolved]
  - Nausea [Recovered/Resolved]
  - Arthralgia [Not Recovered/Not Resolved]

NARRATIVE: CASE EVENT DATE: 20180701
